FAERS Safety Report 14096516 (Version 3)
Quarter: 2018Q1

REPORT INFORMATION
  Report Type: Spontaneous
  Country: BR (occurrence: BR)
  Receive Date: 20171017
  Receipt Date: 20180130
  Transmission Date: 20180508
  Serious: Yes (Hospitalization, Other)
  Sender: FDA-Public Use
  Company Number: BR-AMGEN-BRASP2017155475

PATIENT
  Age: 44 Year
  Sex: Female

DRUGS (5)
  1. ENBREL [Suspect]
     Active Substance: ETANERCEPT
     Indication: ANKYLOSING SPONDYLITIS
     Dosage: 50 MG, WEEKLY (1 APPLICATION PER WEEK)
     Route: 065
     Dates: start: 2014
  2. ISONIAZID. [Concomitant]
     Active Substance: ISONIAZID
     Dosage: 100 MG, UNK
  3. HYDROCHLOROTHIAZIDE. [Concomitant]
     Active Substance: HYDROCHLOROTHIAZIDE
     Dosage: UNK
     Dates: start: 2014
  4. AMLODIPINE [Concomitant]
     Active Substance: AMLODIPINE BESYLATE
     Dosage: UNK
     Dates: start: 2014
  5. SULFASALAZINE. [Concomitant]
     Active Substance: SULFASALAZINE
     Dosage: 300 MG, UNK

REACTIONS (20)
  - Pruritus [Not Recovered/Not Resolved]
  - Fibromyalgia [Not Recovered/Not Resolved]
  - Dysgeusia [Recovered/Resolved]
  - Weight decreased [Not Recovered/Not Resolved]
  - Bone deformity [Not Recovered/Not Resolved]
  - Nodule [Not Recovered/Not Resolved]
  - Musculoskeletal pain [Not Recovered/Not Resolved]
  - Arthritis [Not Recovered/Not Resolved]
  - Hypertension [Unknown]
  - Osteoarthritis [Not Recovered/Not Resolved]
  - Anxiety [Recovered/Resolved]
  - Pulmonary pain [Not Recovered/Not Resolved]
  - Gastric infection [Recovered/Resolved]
  - Spinal pain [Not Recovered/Not Resolved]
  - Pain [Not Recovered/Not Resolved]
  - Condition aggravated [Unknown]
  - Hypoaesthesia [Not Recovered/Not Resolved]
  - Influenza [Recovered/Resolved]
  - Injection site haemorrhage [Recovered/Resolved]
  - Injection site pain [Not Recovered/Not Resolved]

NARRATIVE: CASE EVENT DATE: 2014
